FAERS Safety Report 19804777 (Version 1)
Quarter: 2021Q3

REPORT INFORMATION
  Report Type: Spontaneous
  Country: SE (occurrence: SE)
  Receive Date: 20210908
  Receipt Date: 20210908
  Transmission Date: 20211014
  Serious: Yes (Life-Threatening, Hospitalization, Disabling)
  Sender: FDA-Public Use
  Company Number: SE-BAYER-2021-202978

PATIENT
  Sex: Female
  Weight: 58 kg

DRUGS (2)
  1. MIRENA [Suspect]
     Active Substance: LEVONORGESTREL
     Dosage: 20 ?G PER DAY, CONTINUOUSLY
     Route: 015
     Dates: start: 20140925
  2. INOLAXOL N [STERCULIA URENS GUM] [Suspect]
     Active Substance: HERBALS\KARAYA GUM
     Dosage: 500 MG 1*1
     Route: 048

REACTIONS (1)
  - Acidosis [Recovered/Resolved with Sequelae]
